FAERS Safety Report 7069098-9 (Version None)
Quarter: 2010Q4

REPORT INFORMATION
  Report Type: 
  Country: None (occurrence: None)
  Receive Date: 20101028
  Receipt Date: 20101022
  Transmission Date: 20110411
  Serious: Yes (Hospitalization)
  Sender: FDA-Public Use
  Company Number: A0796735A

PATIENT
  Age: 53 Year
  Sex: Male

DRUGS (7)
  1. AVANDAMET [Suspect]
     Route: 048
     Dates: start: 20060206, end: 20071101
  2. CLONIDINE [Concomitant]
  3. AVODART [Concomitant]
  4. GLIPIZIDE [Concomitant]
  5. HYZAAR [Concomitant]
  6. BACTRIM DS [Concomitant]
  7. TOPROL-XL [Concomitant]

REACTIONS (2)
  - CEREBROVASCULAR ACCIDENT [None]
  - HEMIPLEGIA [None]
